FAERS Safety Report 12323754 (Version 1)
Quarter: 2016Q2

REPORT INFORMATION
  Report Type: Spontaneous
  Country: US (occurrence: US)
  Receive Date: 20160502
  Receipt Date: 20160502
  Transmission Date: 20160815
  Serious: Yes (Hospitalization, Other)
  Sender: FDA-Public Use
  Company Number: US-PFIZER INC-2016229938

PATIENT
  Age: 87 Year
  Sex: Female
  Weight: 114 kg

DRUGS (7)
  1. LASIX [Concomitant]
     Active Substance: FUROSEMIDE
     Indication: FLUID RETENTION
     Dosage: 80 MG, 1X/DAY, (40MG TWO TABLETS ONCE A DAY IN THE MORNING)
  2. SYNTHROID [Concomitant]
     Active Substance: LEVOTHYROXINE SODIUM
     Indication: THYROID DISORDER
     Dosage: 175 UG, 1X/DAY(175MCG ONE TABLET ONCE A DAY)
     Dates: start: 1966
  3. METFORMIN [Concomitant]
     Active Substance: METFORMIN HYDROCHLORIDE
     Indication: DIABETES MELLITUS
     Dosage: 500 MG, 2X/DAY
     Dates: start: 2011
  4. LISINOPRIL. [Concomitant]
     Active Substance: LISINOPRIL
     Indication: BLOOD PRESSURE ABNORMAL
     Dosage: 10 MG, 1X/DAY
     Dates: start: 201603
  5. TIKOSYN [Suspect]
     Active Substance: DOFETILIDE
     Dosage: 0.25 MG, 2X/DAY, 12 HOURS APART
     Route: 048
  6. WARFARIN [Concomitant]
     Active Substance: WARFARIN
     Indication: BLOOD DISORDER
     Dosage: 5 MG, 1X/DAY, BY ONCE AT NIGHT
  7. KLOR-CON [Concomitant]
     Active Substance: POTASSIUM CHLORIDE
     Indication: BLOOD POTASSIUM ABNORMAL
     Dosage: 1 DF, DAILY
     Route: 048
     Dates: start: 2008

REACTIONS (6)
  - Arthritis [Unknown]
  - Viral sinusitis [Recovered/Resolved]
  - Hypertension [Recovered/Resolved]
  - Drug dose omission [Recovered/Resolved]
  - Vertigo [Recovered/Resolved]
  - Dizziness [Recovered/Resolved]

NARRATIVE: CASE EVENT DATE: 20160308
